FAERS Safety Report 24691508 (Version 1)
Quarter: 2024Q4

REPORT INFORMATION
  Report Type: Spontaneous
  Country: CN (occurrence: CN)
  Receive Date: 20241203
  Receipt Date: 20241203
  Transmission Date: 20250114
  Serious: Yes (Other)
  Sender: PFIZER
  Company Number: CN-PFIZER INC-PV202400155047

PATIENT
  Age: 56 Year
  Sex: Male

DRUGS (13)
  1. CYTARABINE [Suspect]
     Active Substance: CYTARABINE
     Indication: Myelodysplastic syndrome
     Dosage: 37.8 MG, 1X/DAY
     Route: 042
     Dates: start: 20240413, end: 20240419
  2. CYTARABINE [Suspect]
     Active Substance: CYTARABINE
     Dosage: 37.8 MG, 1X/DAY
     Route: 042
     Dates: start: 20240515, end: 20240522
  3. DECITABINE [Suspect]
     Active Substance: DECITABINE
     Indication: Neoplasm malignant
     Dosage: 37.8 MG, 1X/DAY
     Route: 042
     Dates: start: 20240412, end: 20240415
  4. ACLARUBICIN [Suspect]
     Active Substance: ACLARUBICIN
     Indication: Neoplasm
     Dosage: 13 MG, 1X/DAY
     Route: 041
     Dates: start: 20240413, end: 20240416
  5. ACLARUBICIN [Suspect]
     Active Substance: ACLARUBICIN
     Dosage: 13 MG, 1X/DAY
     Route: 041
     Dates: start: 20240515, end: 20240518
  6. LI SHENG SU [Concomitant]
     Indication: Neoplasm
     Dosage: 300 UG, 1X/DAY
     Route: 058
     Dates: start: 20240514, end: 20240514
  7. LI SHENG SU [Concomitant]
     Indication: Chemotherapy
     Dosage: 300 UG, 1X/DAY
     Route: 058
     Dates: start: 20240514, end: 20240520
  8. PALONOSETRON [Concomitant]
     Active Substance: PALONOSETRON
     Indication: Antiemetic supportive care
     Dosage: 0.25 MG, 1X/DAY
     Route: 042
     Dates: start: 20240515, end: 20240515
  9. TOUJEO [Concomitant]
     Active Substance: INSULIN GLARGINE
     Indication: Diabetes mellitus management
     Dosage: 6 IU, 1X/DAY
     Route: 058
     Dates: start: 20240511, end: 20240511
  10. SODIUM BICARBONATE [Concomitant]
     Active Substance: SODIUM BICARBONATE
     Indication: Neoplasm
     Dosage: 1000 MG, 3X/DAY
     Route: 048
     Dates: start: 20240514, end: 20240520
  11. NOVORAPID [Concomitant]
     Active Substance: INSULIN ASPART
     Indication: Diabetes mellitus management
     Dosage: 6 IU, 1X/DAY
     Route: 058
     Dates: start: 20240511, end: 20240520
  12. NOVORAPID [Concomitant]
     Active Substance: INSULIN ASPART
     Dosage: 8 IU, 1X/DAY
     Route: 058
     Dates: start: 20240511, end: 20240520
  13. NOVORAPID [Concomitant]
     Active Substance: INSULIN ASPART
     Dosage: 16 IU, 1X/DAY
     Route: 058
     Dates: start: 20240511, end: 20240520

REACTIONS (3)
  - Platelet count increased [Recovering/Resolving]
  - Weight increased [Unknown]
  - Off label use [Unknown]

NARRATIVE: CASE EVENT DATE: 20240413
